FAERS Safety Report 23566072 (Version 1)
Quarter: 2024Q1

REPORT INFORMATION
  Report Type: Spontaneous
  Country: JP (occurrence: JP)
  Receive Date: 20240226
  Receipt Date: 20240226
  Transmission Date: 20240410
  Serious: Yes (Hospitalization, Other)
  Sender: FDA-Public Use
  Company Number: JP-002147023-NVSJ2023JP010531

PATIENT
  Age: 82 Year
  Sex: Female

DRUGS (2)
  1. METHOTREXATE [Suspect]
     Active Substance: METHOTREXATE
     Indication: Rheumatoid arthritis
     Dosage: 2 MG
     Route: 048
  2. METHOTREXATE [Suspect]
     Active Substance: METHOTREXATE
     Dosage: 4 MG, QW
     Route: 048

REACTIONS (5)
  - Pancytopenia [Recovered/Resolved]
  - Toxicity to various agents [Unknown]
  - Mouth ulceration [Recovered/Resolved]
  - Renal impairment [Recovering/Resolving]
  - Herpes zoster [Unknown]
